FAERS Safety Report 8594524-3 (Version None)
Quarter: 2012Q3

REPORT INFORMATION
  Report Type: 
  Country: None (occurrence: None)
  Receive Date: 20120801
  Receipt Date: 20120716
  Transmission Date: 20120928
  Serious: Yes (Hospitalization)
  Sender: FDA-Public Use
  Company Number: DSA_58585_2012

PATIENT
  Age: 57 Year
  Sex: Male

DRUGS (5)
  1. MEPREDNISONE [Concomitant]
  2. EZETIMIBE/SIMVASTATIN [Concomitant]
  3. MYCOPHENOLATE MOFETIL [Suspect]
     Indication: IMMUNOSUPPRESSION
     Dosage: (500 MG TID), (DF)
  4. LOSARTAN POTASSIUM [Concomitant]
  5. FENOFIBRATE [Suspect]
     Indication: BLOOD TRIGLYCERIDES INCREASED
     Dosage: (200 MG QD)

REACTIONS (3)
  - FEBRILE NEUTROPENIA [None]
  - DRUG INTERACTION [None]
  - BONE MARROW FAILURE [None]
